FAERS Safety Report 6631446-9 (Version None)
Quarter: 2010Q1

REPORT INFORMATION
  Report Type: 
  Country: None (occurrence: None)
  Receive Date: 20100311
  Receipt Date: 20100311
  Transmission Date: 20100710
  Serious: No
  Sender: FDA-Public Use
  Company Number: None

PATIENT
  Age: 60 Year
  Sex: Male
  Weight: 115.6672 kg

DRUGS (2)
  1. CIALIS [Suspect]
     Indication: NERVE INJURY
     Dosage: 1 TABLET EVERY 3 DAYS PO, 1 TIME
     Route: 048
     Dates: start: 20100307, end: 20100307
  2. CIALIS [Suspect]
     Indication: SURGERY
     Dosage: 1 TABLET EVERY 3 DAYS PO, 1 TIME
     Route: 048
     Dates: start: 20100307, end: 20100307

REACTIONS (4)
  - DIZZINESS [None]
  - HYPOACUSIS [None]
  - NERVE INJURY [None]
  - TINNITUS [None]
